FAERS Safety Report 8069496-0 (Version None)
Quarter: 2012Q1

REPORT INFORMATION
  Report Type: 
  Country: None (occurrence: None)
  Receive Date: 20120125
  Receipt Date: 20120119
  Transmission Date: 20120608
  Serious: Yes (Other)
  Sender: FDA-Public Use
  Company Number: US-BAYER-2012-007070

PATIENT
  Age: 65 Year
  Sex: Female

DRUGS (4)
  1. ASPIRIN [Suspect]
     Dosage: BOTTLE COUNT: NOT REPORTED
     Route: 048
  2. CITRACAL PETITES [Suspect]
     Dosage: BOTTLE COUNT 200S
     Route: 048
     Dates: start: 20120119, end: 20120119
  3. MULTI-VITAMIN [Concomitant]
  4. ASPIRIN [Concomitant]

REACTIONS (1)
  - CHOKING [None]
